FAERS Safety Report 9254126 (Version 1)
Quarter: 2013Q2

REPORT INFORMATION
  Report Type: Spontaneous
  Country: US (occurrence: None)
  Receive Date: 20130422
  Receipt Date: 20130422
  Transmission Date: 20140414
  Serious: Yes (Life-Threatening)
  Sender: FDA-Public Use
  Company Number: None

PATIENT
  Age: 55 Year
  Sex: Male
  Weight: 77.1 kg

DRUGS (2)
  1. NIMODIPINE [Suspect]
     Indication: SUBARACHNOID HAEMORRHAGE
     Route: 048
     Dates: start: 20130124, end: 20130129
  2. PROPOFOL [Suspect]
     Indication: SEDATION
     Route: 042
     Dates: start: 20130129, end: 20130129

REACTIONS (6)
  - Hyperkalaemia [None]
  - Bradycardia [None]
  - Cardiac arrest [None]
  - Acidosis [None]
  - Electrolyte imbalance [None]
  - Cardiac arrest [None]
